FAERS Safety Report 7147982-5 (Version None)
Quarter: 2010Q4

REPORT INFORMATION
  Report Type: 
  Country: None (occurrence: None)
  Receive Date: 20101206
  Receipt Date: 20101206
  Transmission Date: 20110411
  Serious: No
  Sender: FDA-Public Use
  Company Number: None

PATIENT
  Age: 58 Year
  Sex: Female
  Weight: 111.1313 kg

DRUGS (1)
  1. CRESTOR [Suspect]
     Indication: BLOOD CHOLESTEROL INCREASED
     Dosage: DAILY ONCE PO
     Route: 048
     Dates: start: 20101105, end: 20101115

REACTIONS (2)
  - DYSPHONIA [None]
  - NOCTURNAL DYSPNOEA [None]
